FAERS Safety Report 15573626 (Version 1)
Quarter: 2018Q4

REPORT INFORMATION
  Report Type: Spontaneous
  Country: NL (occurrence: NL)
  Receive Date: 20181101
  Receipt Date: 20181101
  Transmission Date: 20190205
  Serious: Yes (Other)
  Sender: FDA-Public Use
  Company Number: NL-TEVA-2018-NL-970246

PATIENT
  Age: 61 Year
  Sex: Male
  Weight: 77 kg

DRUGS (6)
  1. SYMBICORT [Concomitant]
     Active Substance: BUDESONIDE\FORMOTEROL FUMARATE DIHYDRATE
     Dosage: 2 DD 1
     Route: 065
  2. SPIRIVA [Concomitant]
     Active Substance: TIOTROPIUM BROMIDE MONOHYDRATE
     Dosage: 1 DOSAGE FORMS DAILY; 1 DD 1
     Route: 065
  3. SALBUTAMOL 100 MICROGRAM/DOSIS [Concomitant]
     Dosage: 6 DD 2
     Route: 065
  4. HYDROCHLOORTHIAZIDE 12,5 MG [Concomitant]
     Dosage: 12 MILLIGRAM DAILY; 1 DD 1
     Route: 065
  5. NORTRILEN 25 MG [Concomitant]
     Dosage: 50 MILLIGRAM DAILY; 1DD 2
     Route: 065
  6. ENALAPRIL TABLET, 10 MG (MILLIGRAM) [Suspect]
     Active Substance: ENALAPRIL
     Indication: HYPERTENSION
     Dosage: 10 MILLIGRAM DAILY; 1D1T
     Route: 065
     Dates: start: 20180409, end: 20180908

REACTIONS (5)
  - Dizziness [Recovered/Resolved]
  - Abdominal pain [Recovered/Resolved]
  - Dyschezia [Recovered/Resolved]
  - Diverticulitis [Recovered/Resolved]
  - Abnormal faeces [Recovered/Resolved]

NARRATIVE: CASE EVENT DATE: 20180411
